FAERS Safety Report 7008111-1 (Version None)
Quarter: 2010Q3

REPORT INFORMATION
  Report Type: 
  Country: None (occurrence: None)
  Receive Date: 20100922
  Receipt Date: 20100908
  Transmission Date: 20110219
  Serious: Yes (Hospitalization, Other)
  Sender: FDA-Public Use
  Company Number: BR-US-EMD SERONO, INC.-7012054

PATIENT
  Sex: Female

DRUGS (7)
  1. REBIF [Suspect]
     Indication: RELAPSING-REMITTING MULTIPLE SCLEROSIS
     Route: 058
     Dates: start: 20100101
  2. REBIF [Suspect]
  3. FLUOXETINE [Concomitant]
  4. DALMADORM [Concomitant]
  5. MORPHINE [Concomitant]
  6. AMPLICTIL [Concomitant]
  7. ACETAMINOPHEN [Concomitant]

REACTIONS (10)
  - DYSURIA [None]
  - HEADACHE [None]
  - INJECTION SITE HAEMATOMA [None]
  - MONOPLEGIA [None]
  - MULTIPLE SCLEROSIS RELAPSE [None]
  - NECK PAIN [None]
  - NEURALGIA [None]
  - PAIN [None]
  - PYREXIA [None]
  - URINARY TRACT INFECTION [None]
